FAERS Safety Report 4957129-9 (Version None)
Quarter: 2006Q1

REPORT INFORMATION
  Report Type: 
  Country: None (occurrence: None)
  Receive Date: 20060329
  Receipt Date: 20050711
  Transmission Date: 20060701
  Serious: Yes (Death, Hospitalization, Disabling)
  Sender: FDA-Public Use
  Company Number: US-MERCK-0507USA01696

PATIENT
  Age: 86 Year
  Sex: Female
  Weight: 73 kg

DRUGS (5)
  1. VIOXX [Suspect]
     Indication: ARTHRALGIA
     Route: 048
     Dates: start: 20010727
  2. VIOXX [Suspect]
     Route: 048
     Dates: end: 20021008
  3. CELEBREX [Concomitant]
     Route: 065
     Dates: end: 20021009
  4. TYLENOL (CAPLET) [Concomitant]
     Route: 065
  5. ASPIRIN [Concomitant]
     Route: 065

REACTIONS (6)
  - ANXIETY [None]
  - CARDIOGENIC SHOCK [None]
  - CHEST PAIN [None]
  - INJURY [None]
  - PAIN [None]
  - RENAL FAILURE [None]
